FAERS Safety Report 4997055-2 (Version None)
Quarter: 2006Q2

REPORT INFORMATION
  Report Type: 
  Country: None (occurrence: None)
  Receive Date: 20060505
  Receipt Date: 20060427
  Transmission Date: 20061013
  Serious: Yes (Hospitalization)
  Sender: FDA-Public Use
  Company Number: 2006BI006192

PATIENT
  Age: 44 Year
  Sex: Female
  Weight: 99.7913 kg

DRUGS (3)
  1. AVONEX [Suspect]
     Indication: MULTIPLE SCLEROSIS
     Dosage: 30 UG; QW; IM
     Route: 030
     Dates: end: 20040220
  2. BLOOD PRESSURE MEDICATION NOS [Concomitant]
  3. ASPIRIN [Concomitant]

REACTIONS (7)
  - BLOOD GLUCOSE INCREASED [None]
  - HYPOVOLAEMIA [None]
  - LOCALISED INFECTION [None]
  - POSTOPERATIVE WOUND COMPLICATION [None]
  - PURULENCE [None]
  - SKIN ULCER [None]
  - WOUND HAEMORRHAGE [None]
